FAERS Safety Report 20740229 (Version 1)
Quarter: 2022Q2

REPORT INFORMATION
  Report Type: Spontaneous
  Country: US (occurrence: None)
  Receive Date: 20220422
  Receipt Date: 20220422
  Transmission Date: 20220720
  Serious: No
  Sender: FDA-Public Use
  Company Number: 2022A149114

PATIENT
  Sex: Female
  Weight: 79.4 kg

DRUGS (1)
  1. SYMBICORT [Suspect]
     Active Substance: BUDESONIDE\FORMOTEROL FUMARATE DIHYDRATE
     Indication: Emphysema
     Route: 055

REACTIONS (4)
  - Emphysema [Unknown]
  - Weight increased [Unknown]
  - Asthenia [Unknown]
  - Gait disturbance [Unknown]
